FAERS Safety Report 5279811-9 (Version None)
Quarter: 2007Q1

REPORT INFORMATION
  Report Type: 
  Country: None (occurrence: None)
  Receive Date: 20061212
  Receipt Date: 20041129
  Transmission Date: 20070707
  Serious: Yes (Other)
  Sender: FDA-Public Use
  Company Number: 2004UW24395

PATIENT
  Age: 84 Year
  Sex: Male

DRUGS (4)
  1. RHINOCORT AQUA [Suspect]
     Indication: RHINORRHOEA
     Dosage: 64 MG QD IN
     Route: 055
     Dates: start: 20041126, end: 20041129
  2. METFORMIN HCL [Concomitant]
  3. LISINOPRIL [Concomitant]
  4. TOPROL-XL [Concomitant]

REACTIONS (3)
  - MEDICATION ERROR [None]
  - NASAL DISCOMFORT [None]
  - SKIN IRRITATION [None]
